FAERS Safety Report 8478292-1 (Version None)
Quarter: 2012Q2

REPORT INFORMATION
  Report Type: 
  Country: None (occurrence: None)
  Receive Date: 20120629
  Receipt Date: 20120620
  Transmission Date: 20120825
  Serious: Yes (Death, Hospitalization, Other)
  Sender: FDA-Public Use
  Company Number: JP-SANOFI-AVENTIS-2010SA064363

PATIENT
  Age: 74 Year
  Sex: Female
  Weight: 60 kg

DRUGS (10)
  1. TRASTUZUMAB [Suspect]
     Indication: BREAST CANCER STAGE II
     Dosage: DOSAGE UNKNOWN AND THREE [**] ONE [YASU]
     Route: 041
     Dates: start: 20100420, end: 20100511
  2. ZANTAC [Concomitant]
     Indication: PREMEDICATION
     Route: 048
     Dates: start: 20100603
  3. PACLITAXEL [Suspect]
     Route: 065
     Dates: start: 20100427, end: 20100427
  4. PACLITAXEL [Suspect]
     Route: 065
     Dates: start: 20100504, end: 20100504
  5. PACLITAXEL [Suspect]
     Indication: BREAST CANCER STAGE II
     Route: 065
     Dates: start: 20100420, end: 20100420
  6. ALLEGRA [Concomitant]
     Route: 048
     Dates: start: 20100511, end: 20100514
  7. ALLEGRA [Concomitant]
     Indication: PREMEDICATION
     Dosage: DOSAGE UNKNOWN
     Route: 048
     Dates: start: 20100603
  8. CANDESARTAN CILEXETIL [Concomitant]
     Indication: ESSENTIAL HYPERTENSION
     Route: 048
     Dates: start: 20100417
  9. TAXOTERE [Suspect]
     Indication: BREAST CANCER STAGE II
     Dosage: THREE [**] ONE [YASU]; CYCLES 1-11
     Route: 041
     Dates: start: 20100610, end: 20100908
  10. TRASTUZUMAB [Suspect]
     Route: 065
     Dates: start: 20100527

REACTIONS (15)
  - DUODENAL ULCER HAEMORRHAGE [None]
  - GENERAL PHYSICAL CONDITION ABNORMAL [None]
  - PYREXIA [None]
  - HAEMATEMESIS [None]
  - FEBRILE NEUTROPENIA [None]
  - HEPATIC ENCEPHALOPATHY [None]
  - STEVENS-JOHNSON SYNDROME [None]
  - PANCYTOPENIA [None]
  - BLOOD BILIRUBIN INCREASED [None]
  - CARDIAC FAILURE CONGESTIVE [None]
  - RASH [None]
  - HEPATITIS FULMINANT [None]
  - URINARY TRACT INFECTION [None]
  - NAIL AVULSION [None]
  - OEDEMA PERIPHERAL [None]
